FAERS Safety Report 14182766 (Version 1)
Quarter: 2017Q4

REPORT INFORMATION
  Report Type: Spontaneous
  Country: FR (occurrence: FR)
  Receive Date: 20171113
  Receipt Date: 20171113
  Transmission Date: 20180321
  Serious: Yes (Hospitalization)
  Sender: FDA-Public Use
  Company Number: FR-LPDUSPRD-20171531

PATIENT
  Age: 50 Year
  Sex: Female

DRUGS (4)
  1. CALCIUM LEVOFOLINATE [Suspect]
     Active Substance: LEVOLEUCOVORIN CALCIUM
     Dosage: 346 MG
     Route: 065
     Dates: start: 20170829, end: 20170829
  2. FLUOROURACILE ACCORD [Suspect]
     Active Substance: FLUOROURACIL
     Dosage: 4152 MG/46H
     Route: 065
     Dates: start: 20170829, end: 20170829
  3. VENOFER [Suspect]
     Active Substance: IRON SUCROSE
     Dosage: 200 MG
     Route: 041
     Dates: start: 20170829, end: 20170829
  4. OXALIPLATINE [Suspect]
     Active Substance: OXALIPLATIN
     Dosage: 147.05 MG
     Route: 065
     Dates: start: 20170829, end: 20170829

REACTIONS (1)
  - Generalised tonic-clonic seizure [Recovered/Resolved]

NARRATIVE: CASE EVENT DATE: 20170830
